FAERS Safety Report 5083220-5 (Version None)
Quarter: 2006Q3

REPORT INFORMATION
  Report Type: 
  Country: None (occurrence: None)
  Receive Date: 20060720
  Receipt Date: 20060509
  Transmission Date: 20061208
  Serious: Yes (Hospitalization, Disabling)
  Sender: FDA-Public Use
  Company Number: 2006063223

PATIENT
  Age: 56 Year
  Sex: Female

DRUGS (1)
  1. CELEBREX [Suspect]
     Indication: RHEUMATOID ARTHRITIS
     Dosage: 200 MG (1 IN 1 D)
     Dates: start: 20041007, end: 20050901

REACTIONS (3)
  - CHEST PAIN [None]
  - FEAR [None]
  - MYOCARDIAL INFARCTION [None]
